FAERS Safety Report 21179100 (Version 1)
Quarter: 2022Q3

REPORT INFORMATION
  Report Type: Spontaneous
  Country: US (occurrence: US)
  Receive Date: 20220805
  Receipt Date: 20220805
  Transmission Date: 20221027
  Serious: No
  Sender: FDA-Public Use
  Company Number: US-JAZZ-2022-US-014312

PATIENT
  Age: 26 Year
  Sex: Male

DRUGS (2)
  1. XYWAV [Suspect]
     Active Substance: CALCIUM OXYBATE\MAGNESIUM OXYBATE\POTASSIUM OXYBATE\SODIUM OXYBATE
     Indication: Hypersomnia
     Dosage: 2.25 GRAM, BID
     Route: 048
  2. LAMOTRIGINE [Concomitant]
     Active Substance: LAMOTRIGINE
     Indication: Depressed mood
     Dosage: UNK

REACTIONS (6)
  - Tinnitus [Unknown]
  - Peripheral coldness [Unknown]
  - Heart rate increased [Unknown]
  - Cyanosis [Unknown]
  - Body temperature decreased [Unknown]
  - Nausea [Unknown]
